FAERS Safety Report 17059406 (Version 3)
Quarter: 2019Q4

REPORT INFORMATION
  Report Type: Report from Study
  Country: US (occurrence: US)
  Receive Date: 20191121
  Receipt Date: 20191220
  Transmission Date: 20200122
  Serious: No
  Sender: FDA-Public Use
  Company Number: NVSC2019US041874

PATIENT
  Age: 71 Year
  Sex: Male

DRUGS (1)
  1. MAYZENT [Suspect]
     Active Substance: SIPONIMOD
     Indication: PRODUCT USED FOR UNKNOWN INDICATION
     Dosage: 2 MG, QD
     Route: 048
     Dates: start: 20191104

REACTIONS (5)
  - Malaise [Unknown]
  - Pain in extremity [Unknown]
  - Fall [Unknown]
  - Tremor [Unknown]
  - Paraesthesia [Unknown]

NARRATIVE: CASE EVENT DATE: 20191113
